FAERS Safety Report 6856384-8 (Version None)
Quarter: 2010Q3

REPORT INFORMATION
  Report Type: 
  Country: None (occurrence: None)
  Receive Date: 20100715
  Receipt Date: 20100715
  Transmission Date: 20110219
  Serious: Yes (Hospitalization)
  Sender: FDA-Public Use
  Company Number: None

PATIENT
  Age: 20 Year
  Sex: Male

DRUGS (3)
  1. SEROQUEL [Suspect]
     Indication: EMOTIONAL DISTRESS
     Dosage: 200MG PO QD + 800MG QHS QD AND QHS PO
     Route: 048
     Dates: start: 20090921, end: 20100423
  2. SEROQUEL [Suspect]
     Indication: IMPULSE-CONTROL DISORDER
     Dosage: 200MG PO QD + 800MG QHS QD AND QHS PO
     Route: 048
     Dates: start: 20090921, end: 20100423
  3. TRICOR [Suspect]
     Indication: HYPERLIPIDAEMIA
     Dosage: 48MG QD PO
     Route: 048
     Dates: start: 20100217, end: 20100415

REACTIONS (1)
  - NEUTROPHIL COUNT DECREASED [None]
